FAERS Safety Report 10270306 (Version 6)
Quarter: 2014Q3

REPORT INFORMATION
  Report Type: Spontaneous
  Country: GB (occurrence: None)
  Receive Date: 20140627
  Receipt Date: 20140829
  Transmission Date: 20150326
  Serious: Yes (Hospitalization, Other)
  Sender: FDA-Public Use
  Company Number: AUR-APL-2014-06619

PATIENT
  Age: 58 Year
  Sex: Female

DRUGS (7)
  1. VALSARTAN. [Suspect]
     Active Substance: VALSARTAN
     Indication: HYPERTENSION
     Dates: start: 20120403, end: 20120430
  2. IRBESARTAN ACTAVIS (IRBESARTAN) UNKNOWN [Suspect]
     Active Substance: IRBESARTAN
     Indication: HYPERTENSION
  3. RAMIPRIL CAPSULES 2.5MG (RAMIPRIL) CAPSULE, 2.5MG [Suspect]
     Active Substance: RAMIPRIL
     Indication: HYPERTENSION
     Route: 048
     Dates: start: 201405
  4. VALSARTAN SANDOZ (VALSARTAN) TABLET [Suspect]
     Active Substance: VALSARTAN
     Indication: HYPERTENSION
     Dosage: UNK
     Dates: end: 20140207
  5. RAMIPRIL SANDOZ (RAMIPRIL) UNKNOWN [Suspect]
     Active Substance: RAMIPRIL
     Indication: HYPERTENSION
  6. BISOPROLOL TEVA (BISOPROLOL FUMARATE) UNKNOWN [Concomitant]
  7. VALSARTAN (VALSARTAN) [Suspect]
     Active Substance: VALSARTAN
     Indication: PRODUCT USED FOR UNKNOWN INDICATION

REACTIONS (24)
  - Gastrointestinal oedema [None]
  - Cell marker increased [None]
  - Heart sounds abnormal [None]
  - Hepatic enzyme increased [None]
  - Restlessness [None]
  - Fear [None]
  - Drug ineffective [None]
  - Ear discomfort [None]
  - Tenderness [None]
  - Weight increased [None]
  - White blood cell count increased [None]
  - Troponin increased [None]
  - Abdominal discomfort [None]
  - Malaise [None]
  - Scab [None]
  - Mouth swelling [None]
  - Muscle strain [None]
  - Myocardial infarction [None]
  - Swollen tongue [None]
  - Chest pain [None]
  - Alopecia [None]
  - Feeling abnormal [None]
  - Tinnitus [None]
  - Nasal dryness [None]
